FAERS Safety Report 9929396 (Version 3)
Quarter: 2016Q3

REPORT INFORMATION
  Report Type: Spontaneous
  Country: TR (occurrence: TR)
  Receive Date: 20140227
  Receipt Date: 20160722
  Transmission Date: 20161109
  Serious: Yes (Hospitalization, Other)
  Sender: FDA-Public Use
  Company Number: TR-BRISTOL-MYERS SQUIBB COMPANY-20135463

PATIENT
  Age: 67 Year
  Sex: Male

DRUGS (2)
  1. WARFARIN SODIUM. [Suspect]
     Active Substance: WARFARIN SODIUM
     Indication: ATRIAL FIBRILLATION
  2. WARFARIN SODIUM. [Suspect]
     Active Substance: WARFARIN SODIUM
     Indication: MITRAL VALVE REPLACEMENT
     Route: 065

REACTIONS (6)
  - Overdose [Unknown]
  - Blood urea increased [Unknown]
  - Blood creatinine increased [Unknown]
  - Upper gastrointestinal haemorrhage [Recovered/Resolved]
  - Hypotension [Unknown]
  - Intestinal haematoma [Recovered/Resolved]
